FAERS Safety Report 5604264-8 (Version None)
Quarter: 2008Q1

REPORT INFORMATION
  Report Type: 
  Country: None (occurrence: None)
  Receive Date: 20080128
  Receipt Date: 20080121
  Transmission Date: 20080703
  Serious: Yes (Other)
  Sender: FDA-Public Use
  Company Number: NO-ELI_LILLY_AND_COMPANY-NO200709006691

PATIENT
  Sex: Female
  Weight: 32.8 kg

DRUGS (2)
  1. ZYPREXA [Suspect]
     Indication: PERSONALITY DISORDER
     Dosage: 5 MG, DAILY (1/D)
     Route: 048
     Dates: start: 20060925
  2. ZYPREXA [Suspect]
     Dosage: 2.5 MG, UNK
     Dates: end: 20070925

REACTIONS (1)
  - NEUTROPENIA [None]
